FAERS Safety Report 13981101 (Version 2)
Quarter: 2017Q4

REPORT INFORMATION
  Report Type: Report from Study
  Country: None (occurrence: US)
  Receive Date: 20170918
  Receipt Date: 20171003
  Transmission Date: 20180321
  Serious: Yes (Disabling)
  Sender: FDA-Public Use
  Company Number: US-ABBVIE-17K-163-2099279-00

PATIENT
  Age: 52 Year
  Sex: Female
  Weight: 75.36 kg

DRUGS (1)
  1. HUMIRA [Suspect]
     Active Substance: ADALIMUMAB
     Indication: RHEUMATOID ARTHRITIS
     Route: 058
     Dates: start: 201708

REACTIONS (1)
  - Aphonia [Recovered/Resolved]

NARRATIVE: CASE EVENT DATE: 201709
